FAERS Safety Report 20190046 (Version 1)
Quarter: 2021Q4

REPORT INFORMATION
  Report Type: Spontaneous
  Country: None (occurrence: A1)
  Receive Date: 20211215
  Receipt Date: 20211215
  Transmission Date: 20220303
  Serious: Yes (Death, Other)
  Sender: FDA-Public Use
  Company Number: A1-Acella Pharmaceuticals, LLC-2123058

PATIENT
  Age: 81 Year
  Sex: Female

DRUGS (3)
  1. GABAPENTIN [Suspect]
     Active Substance: GABAPENTIN
     Indication: Product used for unknown indication
     Route: 065
  2. FUROSEMIDE [Suspect]
     Active Substance: FUROSEMIDE
     Route: 065
  3. LOSARTAN [Suspect]
     Active Substance: LOSARTAN
     Route: 065

REACTIONS (9)
  - Dyskinesia [Unknown]
  - Myoclonus [Unknown]
  - Nephropathy toxic [Unknown]
  - Hypoglycaemia [Unknown]
  - Balance disorder [Unknown]
  - Fall [Unknown]
  - Toxicity to various agents [Unknown]
  - Overdose [Unknown]
  - Acute kidney injury [Unknown]
